FAERS Safety Report 8074290-0 (Version None)
Quarter: 2011Q4

REPORT INFORMATION
  Report Type: 
  Country: None (occurrence: None)
  Receive Date: 20111221
  Receipt Date: 20110404
  Transmission Date: 20120403
  Serious: Yes (Other)
  Sender: FDA-Public Use
  Company Number: PHHY2011US29560

PATIENT
  Sex: Male
  Weight: 80.7 kg

DRUGS (1)
  1. EXJADE [Suspect]
     Indication: MYELODYSPLASTIC SYNDROME
     Dosage: 1500 MG, QD, ORAL
     Route: 048
     Dates: start: 20110307

REACTIONS (1)
  - RENAL FUNCTION TEST ABNORMAL [None]
